FAERS Safety Report 4736187-0 (Version None)
Quarter: 2005Q3

REPORT INFORMATION
  Report Type: 
  Country: None (occurrence: None)
  Receive Date: 20050806
  Receipt Date: 20050627
  Transmission Date: 20060218
  Serious: Yes (Death, Hospitalization)
  Sender: FDA-Public Use
  Company Number: PHRM2005FR01955

PATIENT
  Age: 85 Year
  Sex: Male
  Weight: 71 kg

DRUGS (8)
  1. STALEVO 100 [Suspect]
     Indication: PARKINSON'S DISEASE
     Dosage: 200/100/25 MG X 4/DAY
     Route: 048
     Dates: start: 20050321, end: 20050524
  2. ANDROCUR [Suspect]
     Indication: PROSTATE CANCER
     Dosage: 100 MG, TID
     Route: 048
     Dates: start: 19950101, end: 20050519
  3. EXELON [Suspect]
     Route: 048
  4. APROVEL [Concomitant]
     Indication: HYPERTENSION
     Dosage: 300 MG, QD
     Route: 048
     Dates: end: 20050523
  5. XATRAL - SLOW RELEASE [Concomitant]
     Indication: DYSURIA
     Dosage: 10 MG, QD
     Route: 048
  6. ELISOR [Concomitant]
     Indication: HYPERCHOLESTEROLAEMIA
     Dosage: 20 MG, QD
     Route: 048
     Dates: end: 20050523
  7. OMEPRAZOLE [Concomitant]
     Indication: HIATUS HERNIA
     Dosage: 20 MG, QD
     Route: 048
     Dates: end: 20050524
  8. SERETIDE [Concomitant]
     Dosage: 2 DF, BID

REACTIONS (20)
  - ALANINE AMINOTRANSFERASE INCREASED [None]
  - ASCITES [None]
  - ASPARTATE AMINOTRANSFERASE INCREASED [None]
  - BLOOD ALBUMIN DECREASED [None]
  - BLOOD ALKALINE PHOSPHATASE INCREASED [None]
  - BLOOD BILIRUBIN INCREASED [None]
  - BLOOD IRON DECREASED [None]
  - COLITIS [None]
  - GALLBLADDER DISORDER [None]
  - GAMMA-GLUTAMYLTRANSFERASE INCREASED [None]
  - GENERAL PHYSICAL HEALTH DETERIORATION [None]
  - HEPATITIS [None]
  - IRON BINDING CAPACITY TOTAL DECREASED [None]
  - JAUNDICE [None]
  - PULMONARY EMBOLISM [None]
  - SERUM FERRITIN INCREASED [None]
  - SUBILEUS [None]
  - TRANSFERRIN DECREASED [None]
  - TRANSFERRIN SATURATION INCREASED [None]
  - VOMITING [None]
